FAERS Safety Report 16297870 (Version 3)
Quarter: 2019Q3

REPORT INFORMATION
  Report Type: Spontaneous
  Country: BR (occurrence: BR)
  Receive Date: 20190510
  Receipt Date: 20190723
  Transmission Date: 20191004
  Serious: Yes (Hospitalization)
  Sender: FDA-Public Use
  Company Number: BR-ABBVIE-19P-020-2777561-00

PATIENT
  Sex: Male

DRUGS (1)
  1. DEPAKOTE [Suspect]
     Active Substance: DIVALPROEX SODIUM
     Indication: PRODUCT USED FOR UNKNOWN INDICATION
     Dosage: 1 CAPSULE, TWICE DAILY, CAPSULE IS DISSOLVED WITH MILK OR WATER
     Route: 048
     Dates: start: 20190502

REACTIONS (6)
  - Poor quality product administered [Unknown]
  - Liver disorder [Unknown]
  - Product use issue [Unknown]
  - Seizure [Unknown]
  - Product complaint [Unknown]
  - Product storage error [Unknown]

NARRATIVE: CASE EVENT DATE: 2019
